FAERS Safety Report 8458825-1 (Version None)
Quarter: 2012Q2

REPORT INFORMATION
  Report Type: 
  Country: None (occurrence: None)
  Receive Date: 20120622
  Receipt Date: 20120615
  Transmission Date: 20120825
  Serious: Yes (Other)
  Sender: FDA-Public Use
  Company Number: US-PFIZER INC-2012146237

PATIENT

DRUGS (1)
  1. LYRICA [Suspect]
     Dosage: UNK

REACTIONS (9)
  - DISTURBANCE IN ATTENTION [None]
  - BLINDNESS TRANSIENT [None]
  - ERYTHEMA MULTIFORME [None]
  - DEPRESSION [None]
  - DYSGEUSIA [None]
  - VISUAL IMPAIRMENT [None]
  - HYPERAESTHESIA [None]
  - MEMORY IMPAIRMENT [None]
  - MORBID THOUGHTS [None]
